FAERS Safety Report 9720081 (Version 3)
Quarter: 2014Q4

REPORT INFORMATION
  Report Type: Spontaneous
  Country: FR (occurrence: FR)
  Receive Date: 20131128
  Receipt Date: 20141208
  Transmission Date: 20150529
  Serious: Yes (Hospitalization)
  Sender: FDA-Public Use
  Company Number: ALCN2013FR005950

PATIENT
  Age: 68 Year
  Sex: Male

DRUGS (8)
  1. TOBREX [Suspect]
     Active Substance: TOBRAMYCIN
     Dosage: 1 DF, TID
     Route: 047
     Dates: start: 20131017
  2. TAHOR [Suspect]
     Active Substance: ATORVASTATIN CALCIUM
     Indication: ISCHAEMIC STROKE
     Dosage: 1 DF, QD
     Route: 048
     Dates: start: 20131014
  3. BACTRIM [Suspect]
     Active Substance: SULFAMETHOXAZOLE\TRIMETHOPRIM
     Indication: BACTERIAL PYELONEPHRITIS
     Dosage: 2 DF, BID
     Route: 042
     Dates: start: 20131011, end: 20131024
  4. KARDEGIC [Suspect]
     Active Substance: ASPIRIN LYSINE
     Indication: ISCHAEMIC STROKE
     Dosage: 1 DF, QD
     Route: 048
     Dates: start: 20131014
  5. LYRICA [Suspect]
     Active Substance: PREGABALIN
     Indication: NEUROPATHY PERIPHERAL
     Dosage: 1 DF, BID
     Route: 048
     Dates: start: 20131014
  6. LOVENOX [Suspect]
     Active Substance: ENOXAPARIN SODIUM
     Indication: THROMBOSIS PROPHYLAXIS
     Dosage: 0.4 ML, QD
     Dates: start: 20131003
  7. PERFALGAN [Suspect]
     Active Substance: ACETAMINOPHEN
     Dosage: 100 ML, QID
     Route: 042
     Dates: start: 20131009
  8. PERINDOPRIL [Suspect]
     Active Substance: PERINDOPRIL
     Indication: ISCHAEMIC STROKE
     Dosage: 2 MG, QD
     Route: 048
     Dates: start: 20131015, end: 20131021

REACTIONS (1)
  - Rash maculo-papular [Recovered/Resolved]

NARRATIVE: CASE EVENT DATE: 20131020
